FAERS Safety Report 8776666 (Version 3)
Quarter: 2012Q4

REPORT INFORMATION
  Report Type: 
  Country: BR (occurrence: BR)
  Receive Date: 20120910
  Receipt Date: 20121102
  Transmission Date: 20130627
  Serious: Yes (Life-Threatening, Other)
  Sender: FDA-Public Use
  Company Number: PHHY2012BR077721

PATIENT
  Age: 70 Year
  Sex: Male

DRUGS (6)
  1. FORADIL [Suspect]
     Indication: EMPHYSEMA
     Dosage: (2-4 capsules/day)
  2. FORADIL [Suspect]
     Dosage: At most 4 times
  3. AMINOPHYLLINE [Suspect]
     Indication: ASTHMA
     Dosage: UNK
  4. DUOVENT [Concomitant]
  5. SPIRIVA [Concomitant]
  6. ALENIA [Concomitant]

REACTIONS (18)
  - Feeling abnormal [Unknown]
  - Dyspnoea [Not Recovered/Not Resolved]
  - Varicose ulceration [Recovering/Resolving]
  - Viral infection [Unknown]
  - Scoliosis [Not Recovered/Not Resolved]
  - Kyphosis [Not Recovered/Not Resolved]
  - Lordosis [Not Recovered/Not Resolved]
  - Fall [Unknown]
  - Femur fracture [Not Recovered/Not Resolved]
  - Tracheal obstruction [Unknown]
  - Cataract [Not Recovered/Not Resolved]
  - Balance disorder [Unknown]
  - Head discomfort [Not Recovered/Not Resolved]
  - General physical condition abnormal [Unknown]
  - Movement disorder [Not Recovered/Not Resolved]
  - Incorrect dose administered [Unknown]
  - Dizziness [Not Recovered/Not Resolved]
  - Headache [Not Recovered/Not Resolved]
